FAERS Safety Report 17670385 (Version 1)
Quarter: 2020Q2

REPORT INFORMATION
  Report Type: Spontaneous
  Country: NO (occurrence: NO)
  Receive Date: 20200415
  Receipt Date: 20200415
  Transmission Date: 20200713
  Serious: Yes (Death, Other)
  Sender: FDA-Public Use
  Company Number: NO-PFIZER INC-1012155

PATIENT

DRUGS (5)
  1. G-CSF [Concomitant]
     Active Substance: GRANULOCYTE COLONY-STIMULATING FACTOR NOS
     Indication: PRODUCT USED FOR UNKNOWN INDICATION
     Dosage: UNK
  2. CISPLATIN. [Suspect]
     Active Substance: CISPLATIN
     Indication: OSTEOSARCOMA
     Dosage: 90 MG/M2, CYCLIC (PRE-OPERATIVELY AND 3 CYCLES POST-OPERATIVELY )
     Route: 041
  3. DOXORUBICIN HCL [Suspect]
     Active Substance: DOXORUBICIN HYDROCHLORIDE
     Indication: OSTEOSARCOMA
     Dosage: 75 MG/M2, CYCLIC
     Route: 041
  4. METHOTREXATE. [Concomitant]
     Active Substance: METHOTREXATE
     Indication: OSTEOSARCOMA
     Dosage: UNK, CYCLIC 12 G/ M^2  (2 CYCLES)
     Route: 041
  5. CALCIUM FOLINATE [Concomitant]
     Active Substance: LEUCOVORIN CALCIUM
     Indication: SALVAGE THERAPY
     Dosage: 8 MG/M2, 4X/DAY 8 MG/M2, CYCLIC (EVERY SIXTH HOUR)
     Route: 041

REACTIONS (1)
  - Septic shock [Fatal]
